FAERS Safety Report 20372676 (Version 3)
Quarter: 2022Q1

REPORT INFORMATION
  Report Type: Spontaneous
  Country: US (occurrence: US)
  Receive Date: 20220125
  Receipt Date: 20220316
  Transmission Date: 20220423
  Serious: Yes (Hospitalization)
  Sender: FDA-Public Use
  Company Number: US-Global Blood Therapeutics Inc-US-GBT-22-00110

PATIENT
  Age: 13 Year
  Sex: Female

DRUGS (4)
  1. OXBRYTA [Suspect]
     Active Substance: VOXELOTOR
     Indication: Sickle cell anaemia with crisis
     Route: 048
     Dates: start: 20211222
  2. OXBRYTA [Suspect]
     Active Substance: VOXELOTOR
     Route: 048
     Dates: start: 2022, end: 2022
  3. OXBRYTA [Suspect]
     Active Substance: VOXELOTOR
     Route: 048
     Dates: start: 2022, end: 2022
  4. OXBRYTA [Suspect]
     Active Substance: VOXELOTOR
     Route: 048
     Dates: start: 2022, end: 2022

REACTIONS (14)
  - Splenomegaly [Unknown]
  - Sickle cell anaemia with crisis [Unknown]
  - Pulmonary oedema [Unknown]
  - Ill-defined disorder [Unknown]
  - Epistaxis [Unknown]
  - Limb discomfort [Unknown]
  - Heavy menstrual bleeding [Unknown]
  - Pallor [Unknown]
  - Scleral discolouration [Unknown]
  - Myalgia [Not Recovered/Not Resolved]
  - Arthralgia [Not Recovered/Not Resolved]
  - Sickle cell anaemia with crisis [Not Recovered/Not Resolved]
  - Product dose omission issue [Unknown]
  - Drug titration [Unknown]

NARRATIVE: CASE EVENT DATE: 20211201
